FAERS Safety Report 18133935 (Version 5)
Quarter: 2020Q4

REPORT INFORMATION
  Report Type: Other
  Country: US (occurrence: US)
  Receive Date: 20200811
  Receipt Date: 20201210
  Transmission Date: 20210113
  Serious: Yes (Death)
  Sender: FDA-Public Use
  Company Number: US-ROCHE-2610417

PATIENT
  Age: 68 Year
  Sex: Female

DRUGS (3)
  1. PULMOZYME [Suspect]
     Active Substance: DORNASE ALFA
     Dosage: INHALE 2.5 MG INTO THE LUNGS 2 TIMES DAILY
     Route: 065
  2. PULMOZYME [Suspect]
     Active Substance: DORNASE ALFA
     Dosage: NEBULIZE THE CONTENTS OF 1 VIAL(S) TWICE A DAY
     Route: 065
  3. PULMOZYME [Suspect]
     Active Substance: DORNASE ALFA
     Indication: BRONCHIECTASIS
     Dosage: NEBULIZE THE CONTENTS OF 1 VIAL(S) TWICE A DAY,AMPULES 2.5 ML
     Route: 065

REACTIONS (3)
  - Off label use [Fatal]
  - Intentional product use issue [Fatal]
  - Death [Fatal]

NARRATIVE: CASE EVENT DATE: 20200612
